FAERS Safety Report 5913357-7 (Version None)
Quarter: 2008Q4

REPORT INFORMATION
  Report Type: 
  Country: None (occurrence: None)
  Receive Date: 20081009
  Receipt Date: 20081001
  Transmission Date: 20090506
  Serious: Yes (Other)
  Sender: FDA-Public Use
  Company Number: PHHY2008DO22214

PATIENT
  Age: 75 Year
  Sex: Female

DRUGS (2)
  1. FORADIL INHAL. CAPS. [Suspect]
     Indication: BRONCHOSPASM
     Dosage: 12 UG, Q12H
  2. MIFLONIDE [Suspect]
     Indication: BRONCHOSPASM
     Dosage: 200 UG, Q12H

REACTIONS (6)
  - CAROTID ARTERIOSCLEROSIS [None]
  - COLD SWEAT [None]
  - DIZZINESS [None]
  - HYPOTENSION [None]
  - SYNCOPE [None]
  - VERTIGO [None]
